FAERS Safety Report 18832404 (Version 2)
Quarter: 2023Q1

REPORT INFORMATION
  Report Type: Spontaneous
  Country: US (occurrence: US)
  Receive Date: 20210203
  Receipt Date: 20230125
  Transmission Date: 20230418
  Serious: No
  Sender: FDA-Public Use
  Company Number: US-ALLERGAN-2032070US

PATIENT
  Sex: Female

DRUGS (1)
  1. BOTOX [Suspect]
     Active Substance: ONABOTULINUMTOXINA
     Indication: Migraine
     Dosage: UNK, SINGLE
     Route: 030
     Dates: start: 20200819, end: 20200819

REACTIONS (10)
  - Brow ptosis [Not Recovered/Not Resolved]
  - Oesophageal spasm [Recovered/Resolved]
  - Feeling abnormal [Recovering/Resolving]
  - Dry skin [Recovering/Resolving]
  - Tension headache [Recovering/Resolving]
  - Injection site bruising [Recovering/Resolving]
  - Neck pain [Recovered/Resolved]
  - Injection site swelling [Recovered/Resolved]
  - Nausea [Not Recovered/Not Resolved]
  - Abdominal pain upper [Not Recovered/Not Resolved]

NARRATIVE: CASE EVENT DATE: 20200801
